FAERS Safety Report 6268461-3 (Version None)
Quarter: 2009Q3

REPORT INFORMATION
  Report Type: 
  Country: None (occurrence: None)
  Receive Date: 20090715
  Receipt Date: 20090706
  Transmission Date: 20100115
  Serious: Yes (Death)
  Sender: FDA-Public Use
  Company Number: US-PFIZER INC-2009237092

PATIENT
  Age: 13 Month
  Sex: Male

DRUGS (1)
  1. CEREBYX [Suspect]
     Indication: CONVULSION
     Dosage: UNK
     Dates: start: 20090301, end: 20090301

REACTIONS (1)
  - CARDIAC ARREST [None]
